FAERS Safety Report 17692269 (Version 8)
Quarter: 2025Q4

REPORT INFORMATION
  Report Type: Spontaneous
  Country: US (occurrence: US)
  Receive Date: 20200422
  Receipt Date: 20251119
  Transmission Date: 20260117
  Serious: Yes (Other)
  Sender: PFIZER
  Company Number: US-PFIZER INC-2020156942

PATIENT
  Age: 72 Year
  Sex: Female
  Weight: 76.19 kg

DRUGS (7)
  1. IBRANCE [Suspect]
     Active Substance: PALBOCICLIB
     Indication: Breast cancer metastatic
     Dosage: 125 MG
  2. IBRANCE [Suspect]
     Active Substance: PALBOCICLIB
     Dosage: 100 MG TABLET, TAKE 1 TABLET DAILY FOR 21 DAYS AND 7 DAYS OFF
     Route: 048
  3. IBRANCE [Suspect]
     Active Substance: PALBOCICLIB
     Dosage: 100 MG, DAILY
     Route: 048
     Dates: start: 20200714, end: 20200715
  4. IBRANCE [Suspect]
     Active Substance: PALBOCICLIB
     Dosage: 100 MG, CYCLIC 1 TABLET (DAY 1-21 OFF 7 DAYS)/100 MG DAILY DAYS 1-21 OUT OF 28
     Route: 048
     Dates: start: 202008
  5. IBRANCE [Suspect]
     Active Substance: PALBOCICLIB
     Indication: Breast cancer metastatic
     Dosage: UNK
     Route: 048
     Dates: start: 201801
  6. IBRANCE [Suspect]
     Active Substance: PALBOCICLIB
     Dosage: TAKE 1 (OF 100 MG) CAPSULE PO (ORALLY) DAILY DAYS 1-21 OFF 7 DAYS
     Route: 048
     Dates: start: 20200730
  7. FEMARA [Concomitant]
     Active Substance: LETROZOLE
     Indication: Breast cancer metastatic
     Dosage: UNK
     Dates: start: 201801

REACTIONS (5)
  - Neutropenia [Recovering/Resolving]
  - Leukopenia [Unknown]
  - Blood test abnormal [Unknown]
  - Myalgia [Unknown]
  - Arthralgia [Unknown]

NARRATIVE: CASE EVENT DATE: 20200801
